FAERS Safety Report 5956714-5 (Version None)
Quarter: 2008Q4

REPORT INFORMATION
  Report Type: 
  Country: None (occurrence: None)
  Receive Date: 20081118
  Receipt Date: 20081107
  Transmission Date: 20090506
  Serious: Yes (Hospitalization)
  Sender: FDA-Public Use
  Company Number: JP-ASTRAZENECA-2008AP08835

PATIENT
  Age: 23 Year
  Sex: Female

DRUGS (1)
  1. SEROQUEL [Suspect]
     Dosage: DOSE AT OVERDOSE UNKNOWN
     Route: 048

REACTIONS (2)
  - ALTERED STATE OF CONSCIOUSNESS [None]
  - OVERDOSE [None]
